FAERS Safety Report 7492707-7 (Version None)
Quarter: 2011Q2

REPORT INFORMATION
  Report Type: 
  Country: None (occurrence: None)
  Receive Date: 20110519
  Receipt Date: 20110512
  Transmission Date: 20111010
  Serious: Yes (Hospitalization)
  Sender: FDA-Public Use
  Company Number: SE-NOVOPROD-319446

PATIENT
  Age: 51 Year
  Sex: Male
  Weight: 76 kg

DRUGS (3)
  1. LANTUS [Concomitant]
     Dosage: 22 IU, QD
     Dates: start: 20050101
  2. SIMVASTATIN [Concomitant]
     Indication: HYPERLIPIDAEMIA
     Dosage: UNK
     Dates: start: 20060101
  3. NOVORAPID FLEXPEN [Suspect]
     Indication: DIABETES MELLITUS
     Dosage: 18 U, QD
     Route: 065
     Dates: start: 20050101

REACTIONS (4)
  - LOSS OF CONSCIOUSNESS [None]
  - DEVICE MALFUNCTION [None]
  - DRUG INEFFECTIVE [None]
  - BLOOD GLUCOSE FLUCTUATION [None]
